APPROVED DRUG PRODUCT: FOSAMAX
Active Ingredient: ALENDRONATE SODIUM
Strength: EQ 70MG BASE/75ML **Federal Register determination that product was not discontinued or withdrawn for safety or effectiveness reasons**
Dosage Form/Route: SOLUTION;ORAL
Application: N021575 | Product #001
Applicant: MERCK AND CO INC
Approved: Sep 17, 2003 | RLD: Yes | RS: No | Type: DISCN